FAERS Safety Report 7395398-9 (Version None)
Quarter: 2011Q2

REPORT INFORMATION
  Report Type: 
  Country: None (occurrence: None)
  Receive Date: 20110405
  Receipt Date: 20110324
  Transmission Date: 20111010
  Serious: Yes (Hospitalization)
  Sender: FDA-Public Use
  Company Number: PHHY2011CZ25979

PATIENT
  Age: 55 Year
  Sex: Female

DRUGS (4)
  1. LEVOMEPROMAZINE [Suspect]
     Indication: SCHIZOAFFECTIVE DISORDER DEPRESSIVE TYPE
     Dosage: 200 MG, UNK
  2. VENLAFAXINE HCL [Suspect]
     Indication: SCHIZOAFFECTIVE DISORDER DEPRESSIVE TYPE
     Dosage: 150 MG, UNK
  3. OLANZAPINE [Suspect]
     Indication: SCHIZOAFFECTIVE DISORDER DEPRESSIVE TYPE
     Dosage: 10 MG, UNK
  4. LEVOMEPROMAZINE [Suspect]
     Dosage: 100 MG, UNK

REACTIONS (10)
  - DISTURBANCE IN ATTENTION [None]
  - SUICIDAL IDEATION [None]
  - CONSTIPATION [None]
  - ABULIA [None]
  - NAUSEA [None]
  - DEPRESSIVE SYMPTOM [None]
  - ABDOMINAL PAIN [None]
  - ANHEDONIA [None]
  - ILEUS [None]
  - ILEUS PARALYTIC [None]
